FAERS Safety Report 10333774 (Version 2)
Quarter: 2014Q3

REPORT INFORMATION
  Report Type: Spontaneous
  Country: CA (occurrence: CA)
  Receive Date: 20140723
  Receipt Date: 20140801
  Transmission Date: 20150326
  Serious: Yes (Hospitalization, Other)
  Sender: FDA-Public Use
  Company Number: CA-AMGEN-CANSP2014054849

PATIENT
  Age: 74 Year
  Sex: Female

DRUGS (15)
  1. PLAVIX [Concomitant]
     Active Substance: CLOPIDOGREL BISULFATE
     Indication: CORONARY ARTERY DISEASE
     Dosage: 75 MG, QD
     Route: 048
  2. CLONAZEPAM. [Concomitant]
     Active Substance: CLONAZEPAM
     Dosage: UNK
  3. FUROSEMIDE. [Concomitant]
     Active Substance: FUROSEMIDE
     Dosage: 80 MG, UNK
  4. ROSUVASTATIN [Concomitant]
     Active Substance: ROSUVASTATIN
     Indication: CORONARY ARTERY DISEASE
     Dosage: 20 MG, QD
     Route: 048
  5. ASA [Concomitant]
     Active Substance: ASPIRIN
     Indication: CORONARY ARTERY DISEASE
     Dosage: 81 MG, QD
     Route: 048
  6. METHOTREXATE [Concomitant]
     Active Substance: METHOTREXATE
     Indication: RHEUMATOID ARTHRITIS
     Dosage: 7.5 MG, QWK
     Route: 048
  7. LUCENTIS [Concomitant]
     Active Substance: RANIBIZUMAB
     Dosage: UNK
  8. SPIRIVA [Concomitant]
     Active Substance: TIOTROPIUM BROMIDE MONOHYDRATE
     Dosage: UNK
  9. ADVAIR HFA [Concomitant]
     Active Substance: FLUTICASONE PROPIONATE\SALMETEROL XINAFOATE
     Dosage: UNK
  10. VENTOLIN [Concomitant]
     Active Substance: ALBUTEROL SULFATE
     Dosage: UNK
  11. VITAMIN D                          /00107901/ [Concomitant]
     Active Substance: ERGOCALCIFEROL
     Dosage: UNK
  12. WARFARIN [Concomitant]
     Active Substance: WARFARIN
     Dosage: 4 MG, UNK
  13. FOLIC ACID. [Concomitant]
     Active Substance: FOLIC ACID
     Dosage: UNK
  14. TELMISARTAN. [Concomitant]
     Active Substance: TELMISARTAN
     Indication: CORONARY ARTERY DISEASE
     Dosage: 40 MG, QD
     Route: 048
  15. ENBREL [Suspect]
     Active Substance: ETANERCEPT
     Indication: RHEUMATOID ARTHRITIS
     Dosage: 50 MG, QWK
     Route: 058
     Dates: start: 201405

REACTIONS (4)
  - Stent placement [Recovering/Resolving]
  - Myocardial infarction [Recovering/Resolving]
  - Angioplasty [Recovering/Resolving]
  - Thrombosis in device [Recovered/Resolved]

NARRATIVE: CASE EVENT DATE: 201406
